FAERS Safety Report 12387444 (Version 3)
Quarter: 2016Q2

REPORT INFORMATION
  Report Type: Report from Study
  Country: CA (occurrence: CA)
  Receive Date: 20160519
  Receipt Date: 20160603
  Transmission Date: 20160815
  Serious: Yes (Other)
  Sender: FDA-Public Use
  Company Number: CA-ROCHE-1728179

PATIENT
  Age: 66 Year
  Sex: Male

DRUGS (11)
  1. ESBRIET [Suspect]
     Active Substance: PIRFENIDONE
     Indication: IDIOPATHIC PULMONARY FIBROSIS
     Route: 048
     Dates: start: 20160219
  2. ESBRIET [Suspect]
     Active Substance: PIRFENIDONE
     Route: 048
     Dates: start: 201603, end: 2016
  3. ESBRIET [Suspect]
     Active Substance: PIRFENIDONE
     Route: 048
     Dates: start: 2016
  4. WARFARIN [Concomitant]
     Active Substance: WARFARIN
  5. LISINOPRIL. [Concomitant]
     Active Substance: LISINOPRIL
  6. ESBRIET [Suspect]
     Active Substance: PIRFENIDONE
     Route: 048
  7. ESBRIET [Suspect]
     Active Substance: PIRFENIDONE
     Route: 048
     Dates: start: 20160414
  8. ROSUVASTATIN. [Concomitant]
     Active Substance: ROSUVASTATIN
  9. ESBRIET [Suspect]
     Active Substance: PIRFENIDONE
     Route: 048
     Dates: start: 2016, end: 20160521
  10. ESOMEPRAZOLE [Concomitant]
     Active Substance: ESOMEPRAZOLE
  11. METOPROLOL. [Concomitant]
     Active Substance: METOPROLOL

REACTIONS (10)
  - Photosensitivity reaction [Not Recovered/Not Resolved]
  - Rash [Not Recovered/Not Resolved]
  - Nausea [Recovering/Resolving]
  - Abdominal distension [Recovering/Resolving]
  - Blister [Recovering/Resolving]
  - Blood pressure fluctuation [Unknown]
  - Erythema [Unknown]
  - Joint stiffness [Not Recovered/Not Resolved]
  - Skin exfoliation [Unknown]
  - Constipation [Recovering/Resolving]

NARRATIVE: CASE EVENT DATE: 2016
